FAERS Safety Report 19082012 (Version 2)
Quarter: 2021Q2

REPORT INFORMATION
  Report Type: Spontaneous
  Country: AR (occurrence: AR)
  Receive Date: 20210401
  Receipt Date: 20210413
  Transmission Date: 20210717
  Serious: Yes (Disabling, Other)
  Sender: FDA-Public Use
  Company Number: NVSC2021AR072196

PATIENT
  Age: 49 Year
  Sex: Female

DRUGS (1)
  1. TEGRETOL XR [Suspect]
     Active Substance: CARBAMAZEPINE
     Indication: EPILEPSY
     Dosage: 3 DF, QD
     Route: 065
     Dates: start: 1991

REACTIONS (7)
  - Hypoacusis [Unknown]
  - Pain in extremity [Unknown]
  - Agitation [Unknown]
  - Blepharospasm [Unknown]
  - Epilepsy [Unknown]
  - Nervousness [Unknown]
  - Fatigue [Unknown]

NARRATIVE: CASE EVENT DATE: 202012
